FAERS Safety Report 16253250 (Version 3)
Quarter: 2020Q1

REPORT INFORMATION
  Report Type: Spontaneous
  Country: US (occurrence: US)
  Receive Date: 20190429
  Receipt Date: 20200320
  Transmission Date: 20200409
  Serious: No
  Sender: FDA-Public Use
  Company Number: US-SA-2019SA115856

PATIENT
  Age: 46 Year
  Sex: Male

DRUGS (2)
  1. DUPIXENT [Suspect]
     Active Substance: DUPILUMAB
     Dosage: 300 MG, OTHER
     Route: 058
     Dates: start: 201811
  2. DUPIXENT [Suspect]
     Active Substance: DUPILUMAB
     Indication: ECZEMA
     Dosage: 100 UNK, OTHER
     Route: 058
     Dates: start: 201801

REACTIONS (4)
  - Product use issue [Unknown]
  - Bronchitis [Unknown]
  - Product dose omission [Unknown]
  - Influenza [Unknown]

NARRATIVE: CASE EVENT DATE: 201801
